FAERS Safety Report 4837605-X (Version None)
Quarter: 2005Q4

REPORT INFORMATION
  Report Type: 
  Country: None (occurrence: None)
  Receive Date: 20051024
  Receipt Date: 20050908
  Transmission Date: 20060501
  Serious: No
  Sender: FDA-Public Use
  Company Number: 217302

PATIENT
  Age: 14 Year
  Sex: Female

DRUGS (6)
  1. XOLAIR [Suspect]
     Indication: ASTHMA
     Dosage: 150MG, 1/MONTH, SUBCUTANEOUS
     Route: 058
     Dates: start: 20050531
  2. ADVAIR DISKUS 100/50 [Concomitant]
  3. ALLEGRA [Concomitant]
  4. SINGULAIR [Concomitant]
  5. NASACORT  AQ (TRIAMCINOLONE ACETONIDE) [Concomitant]
  6. ALBUTEROL (ALBUTEROL, ALBUTEROL SULFATE) [Concomitant]

REACTIONS (1)
  - BENIGN NEOPLASM OF THYROID GLAND [None]
